FAERS Safety Report 8949277 (Version 2)
Quarter: 2013Q1

REPORT INFORMATION
  Report Type: Spontaneous
  Country: US (occurrence: US)
  Receive Date: 20121206
  Receipt Date: 20130123
  Transmission Date: 20140127
  Serious: No
  Sender: FDA-Public Use
  Company Number: US-PFIZER INC-2012304962

PATIENT
  Age: 26 Year
  Sex: Male
  Weight: 79.4 kg

DRUGS (3)
  1. GEODON [Suspect]
     Indication: IRRITABILITY
     Dosage: 40 MG, 2X/DAY
     Route: 048
     Dates: start: 20121201, end: 20121202
  2. GEODON [Suspect]
     Indication: ANXIETY
  3. WELLBUTRIN [Concomitant]
     Indication: SMOKING CESSATION THERAPY
     Dosage: 300 MG, DAILY

REACTIONS (11)
  - Fear [Recovered/Resolved]
  - Gastric disorder [Recovering/Resolving]
  - Irritability [Recovered/Resolved]
  - Vision blurred [Recovered/Resolved]
  - Nausea [Recovered/Resolved]
  - Hypoaesthesia [Recovered/Resolved]
  - Anxiety [Recovered/Resolved]
  - Dizziness [Recovered/Resolved]
  - Rash [Recovered/Resolved]
  - Hypersomnia [Recovered/Resolved]
  - Abnormal dreams [Recovered/Resolved]
